FAERS Safety Report 23518265 (Version 2)
Quarter: 2024Q1

REPORT INFORMATION
  Report Type: Spontaneous
  Country: CN (occurrence: CN)
  Receive Date: 20240213
  Receipt Date: 20240220
  Transmission Date: 20240410
  Serious: Yes (Other)
  Sender: FDA-Public Use
  Company Number: CN-MLMSERVICE-20240205-4814949-1

PATIENT
  Age: 6 Month
  Sex: Male

DRUGS (3)
  1. METHOTREXATE SODIUM [Suspect]
     Active Substance: METHOTREXATE SODIUM
     Dosage: FOUR COURSES, CYCLIC
     Dates: start: 2020
  2. MERCAPTOPURINE [Suspect]
     Active Substance: MERCAPTOPURINE
     Dosage: FOUR COURSES, CYCLIC
     Dates: start: 2020
  3. VINDESINE [Suspect]
     Active Substance: VINDESINE
     Dosage: FOUR COURSES, CYCLIC
     Dates: start: 2020

REACTIONS (3)
  - Acarodermatitis [Recovered/Resolved]
  - Condition aggravated [Recovered/Resolved]
  - Acarodermatitis [Recovered/Resolved]

NARRATIVE: CASE EVENT DATE: 20200101
